FAERS Safety Report 6748217-5 (Version None)
Quarter: 2010Q2

REPORT INFORMATION
  Report Type: 
  Country: None (occurrence: None)
  Receive Date: 20100601
  Receipt Date: 20100517
  Transmission Date: 20101027
  Serious: Yes (Disabling, Other)
  Sender: FDA-Public Use
  Company Number: US-ASTRAZENECA-2006UW22890

PATIENT
  Age: 42 Year
  Sex: Female
  Weight: 87.6 kg

DRUGS (20)
  1. SEROQUEL [Suspect]
     Indication: DEPRESSION
     Dosage: 100 - 200 MG
     Route: 048
     Dates: start: 20000101, end: 20051001
  2. SEROQUEL [Suspect]
     Indication: SLEEP DISORDER
     Dosage: 100 - 200 MG
     Route: 048
     Dates: start: 20000101, end: 20051001
  3. SEROQUEL [Suspect]
     Dosage: 50 MG-200 MG
     Route: 048
     Dates: start: 20050324
  4. SEROQUEL [Suspect]
     Dosage: 50 MG-200 MG
     Route: 048
     Dates: start: 20050324
  5. SEROQUEL [Suspect]
     Dosage: 25-100 MG
     Route: 048
     Dates: start: 20020430
  6. SEROQUEL [Suspect]
     Dosage: 25-100 MG
     Route: 048
     Dates: start: 20020430
  7. RISPERDAL [Concomitant]
  8. ZYPREXA [Concomitant]
     Dates: start: 20060301
  9. HUMULIN R [Concomitant]
     Dosage: 70/30
     Dates: start: 20021101
  10. GEODON [Concomitant]
     Dosage: 40 MG-80 MG
     Dates: start: 20021004
  11. TOPAMAX [Concomitant]
     Dates: start: 20021004
  12. BUSPIRONE HCL [Concomitant]
     Dates: start: 20021004
  13. HYDROXYZINE [Concomitant]
     Dosage: 25 MG-50 MG
     Dates: start: 20021004
  14. NEURONTIN [Concomitant]
     Dates: start: 20021004
  15. PROMETHAZINE [Concomitant]
     Dates: start: 20030228
  16. HCTZ [Concomitant]
     Dates: start: 20040202
  17. ALLEGRA [Concomitant]
     Dates: start: 20040129
  18. ZOLOFT [Concomitant]
     Dosage: 50 MG-100 MG
     Dates: start: 20040630
  19. ZOLOFT [Concomitant]
     Dosage: 50 MG THREE QAM
     Dates: start: 19951103
  20. SINGULAIR [Concomitant]
     Dates: start: 20040624

REACTIONS (10)
  - ACQUIRED IMMUNODEFICIENCY SYNDROME [None]
  - DIABETES MELLITUS [None]
  - HEPATIC CIRRHOSIS [None]
  - HEPATITIS [None]
  - HEPATITIS A [None]
  - HEPATITIS B [None]
  - HEPATITIS C [None]
  - HIV ANTIGEN POSITIVE [None]
  - NEUROPATHY PERIPHERAL [None]
  - TYPE 1 DIABETES MELLITUS [None]
